FAERS Safety Report 25129065 (Version 4)
Quarter: 2025Q4

REPORT INFORMATION
  Report Type: Spontaneous
  Country: TW (occurrence: TW)
  Receive Date: 20250327
  Receipt Date: 20251206
  Transmission Date: 20260117
  Serious: Yes (Other)
  Sender: AMGEN
  Company Number: TW-AMGEN-TWNSP2025059276

PATIENT
  Age: 36 Year
  Sex: Female
  Weight: 75 kg

DRUGS (1)
  1. UPLIZNA [Suspect]
     Active Substance: INEBILIZUMAB-CDON
     Indication: Neuromyelitis optica spectrum disorder
     Dosage: 300 MILLIGRAM (LOADING DOSES ON DAY 1 AND DAY 15 THEN EVERY 6 MONTHS)
     Route: 040
     Dates: start: 20240110

REACTIONS (3)
  - Inflammatory marker increased [Recovering/Resolving]
  - Pain in extremity [Recovering/Resolving]
  - Osteonecrosis [Recovering/Resolving]
